FAERS Safety Report 5154698-3 (Version None)
Quarter: 2006Q4

REPORT INFORMATION
  Report Type: 
  Country: None (occurrence: None)
  Receive Date: 20061114
  Receipt Date: 20061030
  Transmission Date: 20070319
  Serious: Yes (Death)
  Sender: FDA-Public Use
  Company Number: 2005107362

PATIENT
  Age: 49 Year
  Sex: Male

DRUGS (22)
  1. NEURONTIN [Suspect]
     Indication: BIPOLAR DISORDER
     Dosage: (400 MG)
     Dates: start: 19961217
  2. NEURONTIN [Suspect]
     Indication: MIGRAINE
     Dosage: (400 MG)
     Dates: start: 19961217
  3. NEURONTIN [Suspect]
     Indication: PAIN
     Dosage: (400 MG)
     Dates: start: 19961217
  4. NEURONTIN [Suspect]
     Indication: RESTLESS LEGS SYNDROME
     Dosage: (400 MG)
     Dates: start: 19961217
  5. ZITHROMAX [Concomitant]
  6. LAMISIL [Concomitant]
  7. LEVAQUIN [Concomitant]
  8. METHYLPREDNISONE (MEPREDNISONE) [Concomitant]
  9. NYSTATIN [Concomitant]
  10. XANAX [Concomitant]
  11. OXYCONTIN [Concomitant]
  12. VICODIN ES [Concomitant]
  13. ALL OTHER THERAPEUTIC PRODUCTS (ALL OTHER THERAPEUTIC PRODUCTS) [Concomitant]
  14. VALIUM [Concomitant]
  15. LORCET-HD [Concomitant]
  16. AMARYL (GLIMPIRIDE) [Concomitant]
  17. ALBUTEROL [Concomitant]
  18. CLARITIN-D [Concomitant]
  19. CELEXA [Concomitant]
  20. PRINIVIL [Concomitant]
  21. PAXIL [Concomitant]
  22. PROMETHAZINE W/CODEINE (CODEINE, PROMETHAZINE) [Concomitant]

REACTIONS (4)
  - COMPLETED SUICIDE [None]
  - GUN SHOT WOUND [None]
  - LOSS OF CONTROL OF LEGS [None]
  - NEUROPATHY PERIPHERAL [None]
